FAERS Safety Report 19504379 (Version 1)
Quarter: 2021Q3

REPORT INFORMATION
  Report Type: Spontaneous
  Country: DE (occurrence: DE)
  Receive Date: 20210708
  Receipt Date: 20210708
  Transmission Date: 20211014
  Serious: Yes (Other)
  Sender: FDA-Public Use
  Company Number: DE-ORGANON-O2107DEU000322

PATIENT
  Sex: Male

DRUGS (2)
  1. PROSCAR [Suspect]
     Active Substance: FINASTERIDE
     Indication: PROSTATIC ADENOMA
     Dosage: 1 WHOLE TABLET PER DAY
     Route: 048
     Dates: start: 202105
  2. PROSCAR [Suspect]
     Active Substance: FINASTERIDE
     Indication: ALOPECIA
     Dosage: A QUARTER OF A TABLET PER DAY UNTIL MAY?2021, THEN 1 WHOLE TABLET PER DAY
     Route: 048
     Dates: end: 202105

REACTIONS (5)
  - Drug ineffective for unapproved indication [Unknown]
  - Urinary retention [Unknown]
  - Prostatic adenoma [Unknown]
  - Wrong technique in product usage process [Unknown]
  - Product use in unapproved indication [Unknown]
